FAERS Safety Report 24376389 (Version 1)
Quarter: 2024Q3

REPORT INFORMATION
  Report Type: Spontaneous
  Country: US (occurrence: None)
  Receive Date: 20240926
  Receipt Date: 20240926
  Transmission Date: 20241017
  Serious: Yes (Hospitalization)
  Sender: Public
  Company Number: None

PATIENT
  Age: 68 Year
  Sex: Male
  Weight: 84 kg

DRUGS (1)
  1. ROSUVASTATIN CALCIUM [Suspect]
     Active Substance: ROSUVASTATIN CALCIUM
     Dosage: FREQUENCY : DAILY;?
     Route: 048
     Dates: end: 20230925

REACTIONS (4)
  - Rhabdomyolysis [None]
  - Decreased appetite [None]
  - Blood pressure decreased [None]
  - Acute kidney injury [None]

NARRATIVE: CASE EVENT DATE: 20230915
